FAERS Safety Report 15075873 (Version 2)
Quarter: 2018Q3

REPORT INFORMATION
  Report Type: Report from Study
  Country: US (occurrence: US)
  Receive Date: 20180627
  Receipt Date: 20180801
  Transmission Date: 20181010
  Serious: No
  Sender: FDA-Public Use
  Company Number: US-SA-2018SA171684

PATIENT
  Age: 64 Year
  Sex: Female

DRUGS (9)
  1. PROPYLTHIOURACIL. [Concomitant]
     Active Substance: PROPYLTHIOURACIL
  2. TERIFLUNOMIDE [Suspect]
     Active Substance: TERIFLUNOMIDE
     Indication: MULTIPLE SCLEROSIS
     Dosage: 14 MG, QD
     Route: 048
     Dates: start: 201804, end: 20180721
  3. TRAMADOL HCL [Concomitant]
     Active Substance: TRAMADOL HYDROCHLORIDE
  4. COLLAGEN [Concomitant]
     Active Substance: COLLAGEN
     Dosage: 125?740MG CAPSULE
  5. ATORVASTATIN CALCIUM. [Concomitant]
     Active Substance: ATORVASTATIN CALCIUM
  6. AMLODIPINE BESYLATE. [Concomitant]
     Active Substance: AMLODIPINE BESYLATE
  7. MELOXICAM. [Concomitant]
     Active Substance: MELOXICAM
  8. BENICAR [Concomitant]
     Active Substance: OLMESARTAN MEDOXOMIL
  9. HUMALOG MIX [Concomitant]
     Active Substance: INSULIN LISPRO
     Dosage: 75?25 75?25/ML VIAL

REACTIONS (6)
  - Decreased interest [Unknown]
  - Depression [Unknown]
  - Alopecia [Unknown]
  - Respiratory tract congestion [Not Recovered/Not Resolved]
  - Paraesthesia [Not Recovered/Not Resolved]
  - Diarrhoea [Not Recovered/Not Resolved]

NARRATIVE: CASE EVENT DATE: 2018
